FAERS Safety Report 8838395 (Version 2)
Quarter: 2013Q2

REPORT INFORMATION
  Report Type: Spontaneous
  Country: JP (occurrence: JP)
  Receive Date: 20121012
  Receipt Date: 20130417
  Transmission Date: 20140414
  Serious: Yes (Life-Threatening)
  Sender: FDA-Public Use
  Company Number: PHHY2012JP089426

PATIENT
  Age: 47 Year
  Sex: Female
  Weight: 59 kg

DRUGS (11)
  1. FOLINIC ACID [Suspect]
     Indication: METASTASES TO LUNG
     Dosage: 200 MG/M2, UNK
  2. FOLINIC ACID [Suspect]
     Dosage: 100 MG/M2, UNK
  3. 5-FLUOROURACIL [Suspect]
     Indication: METASTASES TO LUNG
     Dosage: 400 MG/M2, UNK
     Route: 040
  4. 5-FLUOROURACIL [Suspect]
     Dosage: 2400 MG/M2, UNK
  5. 5-FLUOROURACIL [Suspect]
     Dosage: 200 MG/M2, UNK
     Route: 040
  6. 5-FLUOROURACIL [Suspect]
     Dosage: 1200 MG/M2, UNK
  7. IRINOTECAN [Suspect]
     Indication: METASTASES TO LUNG
     Dosage: 90 MG/M2, UNK
  8. IRINOTECAN [Suspect]
     Dosage: 75 MG/M2, FROM THE 2ND CYCLE ONWARD
  9. IRINOTECAN [Suspect]
     Dosage: 60 MG/M2, FROM THE 4TH CYCLE
  10. IRINOTECAN [Suspect]
     Dosage: 50 MG/M2, FROM THE 8TH CYCLE
  11. BEVACIZUMAB [Suspect]
     Indication: METASTASES TO LUNG
     Dosage: 2.5 MG/M2, UNK

REACTIONS (1)
  - Neutropenia [Recovering/Resolving]
